FAERS Safety Report 26130745 (Version 1)
Quarter: 2025Q4

REPORT INFORMATION
  Report Type: Spontaneous
  Country: US (occurrence: None)
  Receive Date: 20251208
  Receipt Date: 20251208
  Transmission Date: 20260117
  Serious: Yes (Life-Threatening, Hospitalization, Disabling)
  Sender: FDA-CTU
  Company Number: None

PATIENT
  Age: 70 Year
  Sex: Male
  Weight: 81.1 kg

DRUGS (1)
  1. DAPTOMYCIN [Suspect]
     Active Substance: DAPTOMYCIN
     Dosage: FREQUENCY : DAILY;
     Route: 042
     Dates: start: 20250714, end: 20250811

REACTIONS (2)
  - Eosinophilic pneumonia [None]
  - Respiratory failure [None]

NARRATIVE: CASE EVENT DATE: 20250806
